FAERS Safety Report 10244791 (Version 1)
Quarter: 2014Q2

REPORT INFORMATION
  Report Type: Spontaneous
  Country: FR (occurrence: FR)
  Receive Date: 20140618
  Receipt Date: 20140618
  Transmission Date: 20141212
  Serious: Yes (Hospitalization)
  Sender: FDA-Public Use
  Company Number: FR-009507513-1406FRA008260

PATIENT
  Age: 76 Year
  Sex: Male

DRUGS (1)
  1. CANCIDAS [Suspect]
     Indication: SYSTEMIC CANDIDA
     Dosage: 50 MG, QD
     Route: 042
     Dates: start: 20140501, end: 20140526

REACTIONS (1)
  - Toxic skin eruption [Recovered/Resolved]
